FAERS Safety Report 5568029-8 (Version None)
Quarter: 2007Q4

REPORT INFORMATION
  Report Type: 
  Country: None (occurrence: None)
  Receive Date: 20071218
  Receipt Date: 20071203
  Transmission Date: 20080405
  Serious: Yes (Hospitalization)
  Sender: FDA-Public Use
  Company Number: 2007000194

PATIENT
  Age: 76 Year
  Sex: Male
  Weight: 81 kg

DRUGS (9)
  1. ERLOTINIB              (TABLET) [Suspect]
     Indication: NON-SMALL CELL LUNG CANCER
     Dosage: 150 MG, QD) ORAL
     Route: 048
     Dates: start: 20061212
  2. BEVACIZUMAB (INJECTION FOR INFUSION) [Suspect]
     Indication: NON-SMALL CELL LUNG CANCER
     Dosage: (1290 MG, Q3W)  INTRAVENOUS
     Route: 042
     Dates: start: 20061212, end: 20070118
  3. TOPROL-XL [Concomitant]
  4. LIPITOR [Concomitant]
  5. NIASPAN [Concomitant]
  6. NITROSTAT [Concomitant]
  7. ASPIRIN [Concomitant]
  8. ALLEGRA-D (ALLEGRA-D) [Concomitant]
  9. LOPERAMIDE [Concomitant]

REACTIONS (2)
  - ILEUS [None]
  - SMALL INTESTINAL OBSTRUCTION [None]
